FAERS Safety Report 6853937-8 (Version None)
Quarter: 2010Q3

REPORT INFORMATION
  Report Type: 
  Country: None (occurrence: None)
  Receive Date: 20100717
  Receipt Date: 20080205
  Transmission Date: 20110219
  Serious: No
  Sender: FDA-Public Use
  Company Number: US-PFIZER INC-2007099805

PATIENT
  Sex: Female

DRUGS (3)
  1. CHANTIX [Suspect]
     Indication: SMOKING CESSATION THERAPY
     Dates: start: 20070901, end: 20071101
  2. LIPITOR [Concomitant]
     Dates: start: 20070101
  3. SYNTHROID [Concomitant]
     Dates: start: 20070101

REACTIONS (11)
  - AGEUSIA [None]
  - DYSGEUSIA [None]
  - GINGIVAL DISORDER [None]
  - GINGIVAL SWELLING [None]
  - GLOSSODYNIA [None]
  - MUSCULOSKELETAL STIFFNESS [None]
  - ORAL PAIN [None]
  - TENSION [None]
  - THIRST [None]
  - TONGUE DISORDER [None]
  - WEIGHT DECREASED [None]
